FAERS Safety Report 5493938-8 (Version None)
Quarter: 2007Q4

REPORT INFORMATION
  Report Type: 
  Country: None (occurrence: None)
  Receive Date: 20071019
  Receipt Date: 20071011
  Transmission Date: 20080405
  Serious: Yes (Other)
  Sender: FDA-Public Use
  Company Number: 2007BI020391

PATIENT
  Age: 59 Year
  Sex: Male

DRUGS (2)
  1. NATALIZUMAB [Suspect]
     Indication: MULTIPLE SCLEROSIS
     Dosage: 300 MG;QM;IV
     Route: 042
     Dates: start: 20070710
  2. AVONEX [Concomitant]

REACTIONS (5)
  - CONVULSION [None]
  - DECUBITUS ULCER [None]
  - SKIN DISORDER [None]
  - SKIN INFECTION [None]
  - WOUND [None]
